FAERS Safety Report 6179031-X (Version None)
Quarter: 2009Q2

REPORT INFORMATION
  Report Type: 
  Country: None (occurrence: None)
  Receive Date: 20090505
  Receipt Date: 20090422
  Transmission Date: 20091009
  Serious: Yes (Life-Threatening, Other)
  Sender: FDA-Public Use
  Company Number: US-BAYER-200919092NA

PATIENT
  Age: 77 Year
  Sex: Male

DRUGS (1)
  1. ULTRAVIST 150 [Suspect]
     Indication: COMPUTERISED TOMOGRAM THORAX
     Dosage: TOTAL DAILY DOSE: 100 ML
     Dates: start: 20090422, end: 20090422

REACTIONS (3)
  - DYSPNOEA [None]
  - FEELING HOT [None]
  - PULSE ABSENT [None]
